FAERS Safety Report 12577227 (Version 2)
Quarter: 2016Q3

REPORT INFORMATION
  Report Type: Report from Study
  Country: FR (occurrence: FR)
  Receive Date: 20160720
  Receipt Date: 20160914
  Transmission Date: 20161109
  Serious: Yes (Hospitalization, Other)
  Sender: FDA-Public Use
  Company Number: FR-PFIZER INC-2015180808

PATIENT
  Age: 43 Year
  Sex: Male
  Weight: 99 kg

DRUGS (14)
  1. CIMZIA [Suspect]
     Active Substance: CERTOLIZUMAB PEGOL
     Dosage: UNK
     Dates: start: 200605, end: 200705
  2. USTEKINUMAB [Suspect]
     Active Substance: USTEKINUMAB
     Dosage: UNK
     Dates: start: 201209, end: 201304
  3. PF-00547659 [Suspect]
     Active Substance: INVESTIGATIONAL PRODUCT
     Dosage: 225 MG, EVERY 4 WEEKS
     Route: 058
     Dates: start: 20140314, end: 20140707
  4. IMUREL [Suspect]
     Active Substance: AZATHIOPRINE SODIUM
     Dosage: UNK
     Dates: start: 200511, end: 200904
  5. METHOTREXATE SODIUM. [Suspect]
     Active Substance: METHOTREXATE SODIUM
     Dosage: UNK
     Dates: start: 201305, end: 201308
  6. HUMIRA [Suspect]
     Active Substance: ADALIMUMAB
     Dosage: UNK
     Dates: start: 201005, end: 201107
  7. GSK1605786A [Suspect]
     Active Substance: VERCIRNON SODIUM
     Dosage: UNK (GSK1605786A)
     Dates: start: 20120120, end: 20120706
  8. OROCAL D3 [Concomitant]
     Active Substance: CALCIUM CARBONATE\CHOLECALCIFEROL
     Indication: OSTEOPOROSIS PROPHYLAXIS
     Dosage: 400 MG, DAILY
     Route: 048
     Dates: start: 20131127
  9. REMICADE [Suspect]
     Active Substance: INFLIXIMAB
     Dosage: UNK
     Dates: start: 200706, end: 201003
  10. GSK1605786A [Suspect]
     Active Substance: VERCIRNON SODIUM
     Dosage: UNK (PLACEBO OR GSK1605786A)
     Dates: start: 20111027, end: 20120119
  11. HYDROCORTISONE. [Concomitant]
     Active Substance: HYDROCORTISONE
     Indication: ADRENAL INSUFFICIENCY
     Dosage: 30 MG, DAILY
     Route: 048
     Dates: start: 20141115
  12. PF-00547659 [Suspect]
     Active Substance: INVESTIGATIONAL PRODUCT
     Indication: CROHN^S DISEASE
     Dosage: 75 MG, EVERY 4 WEEKS
     Route: 058
     Dates: start: 20140122, end: 20140219
  13. HYDROCORTISONE. [Concomitant]
     Active Substance: HYDROCORTISONE
     Indication: PROPHYLAXIS
  14. TACROLIMUS. [Concomitant]
     Active Substance: TACROLIMUS
     Indication: CROHN^S DISEASE
     Dosage: 7 MG, 2X/DAY
     Route: 048
     Dates: start: 20141127, end: 201503

REACTIONS (3)
  - Crohn^s disease [Recovered/Resolved with Sequelae]
  - Condition aggravated [Recovered/Resolved with Sequelae]
  - Colon cancer [Recovered/Resolved with Sequelae]

NARRATIVE: CASE EVENT DATE: 20150329
